FAERS Safety Report 4412095-X (Version None)
Quarter: 2004Q3

REPORT INFORMATION
  Report Type: 
  Country: None (occurrence: None)
  Receive Date: 20040730
  Receipt Date: 20040614
  Transmission Date: 20050211
  Serious: Yes (Hospitalization)
  Sender: FDA-Public Use
  Company Number: ES-GLAXOSMITHKLINE-B0336175A

PATIENT
  Age: 68 Year
  Sex: Female

DRUGS (2)
  1. AUGMENTIN '250' [Suspect]
     Indication: URINARY TRACT INFECTION
     Route: 065
  2. OMEPRAZOLE [Suspect]
     Route: 065

REACTIONS (8)
  - ABDOMINAL PAIN UPPER [None]
  - ASTHENIA [None]
  - DISCOMFORT [None]
  - DIZZINESS [None]
  - HAEMOLYTIC ANAEMIA [None]
  - HEPATOMEGALY [None]
  - JAUNDICE [None]
  - PALLOR [None]
